FAERS Safety Report 6168649-6 (Version None)
Quarter: 2009Q2

REPORT INFORMATION
  Report Type: 
  Country: None (occurrence: None)
  Receive Date: 20090424
  Receipt Date: 20090424
  Transmission Date: 20091009
  Serious: Yes (Life-Threatening)
  Sender: FDA-Public Use
  Company Number: None

PATIENT
  Age: 63 Year
  Sex: Male
  Weight: 95.2554 kg

DRUGS (2)
  1. PROAIR HFA [Suspect]
     Route: 055
  2. COMBIVENT [Suspect]

REACTIONS (5)
  - DEVICE MALFUNCTION [None]
  - DRUG INEFFECTIVE [None]
  - OROPHARYNGITIS FUNGAL [None]
  - PRODUCT QUALITY ISSUE [None]
  - PRODUCT SUBSTITUTION ISSUE [None]
